FAERS Safety Report 13077849 (Version 2)
Quarter: 2017Q1

REPORT INFORMATION
  Report Type: Spontaneous
  Country: US (occurrence: US)
  Receive Date: 20170102
  Receipt Date: 20170102
  Transmission Date: 20170428
  Serious: Yes (Other)
  Sender: FDA-Public Use
  Company Number: US-CIPLA LTD.-2016ES23927

PATIENT

DRUGS (6)
  1. ANOVULATORIO [Interacting]
     Active Substance: NORETHINDRONE ACETATE
     Dosage: UNK
     Route: 048
  2. BENZTROPINE [Interacting]
     Active Substance: BENZTROPINE
     Dosage: UNK
     Route: 065
  3. TOPIRAMATE. [Suspect]
     Active Substance: TOPIRAMATE
     Dosage: UNK
     Route: 065
  4. RISPERIDONE. [Interacting]
     Active Substance: RISPERIDONE
     Dosage: UNK
     Route: 065
  5. CLONAZEPAM. [Interacting]
     Active Substance: CLONAZEPAM
     Dosage: UNK
     Route: 065
  6. DIVALPROEX [Interacting]
     Active Substance: DIVALPROEX SODIUM
     Dosage: UNK
     Route: 065

REACTIONS (3)
  - Hepatotoxicity [None]
  - Hepatitis [Recovering/Resolving]
  - Drug interaction [Unknown]
